FAERS Safety Report 8537556-3 (Version None)
Quarter: 2012Q3

REPORT INFORMATION
  Report Type: 
  Country: None (occurrence: None)
  Receive Date: 20120725
  Receipt Date: 20120717
  Transmission Date: 20120928
  Serious: Yes (Other)
  Sender: FDA-Public Use
  Company Number: US-ASTRAZENECA-2012SE50394

PATIENT
  Age: 58 Year
  Sex: Male

DRUGS (2)
  1. PAIN MEDICATION [Concomitant]
  2. NEXIUM [Suspect]
     Route: 048

REACTIONS (3)
  - INTERVERTEBRAL DISC DEGENERATION [None]
  - PAIN [None]
  - NERVE INJURY [None]
